FAERS Safety Report 5352329-0 (Version None)
Quarter: 2007Q2

REPORT INFORMATION
  Report Type: 
  Country: None (occurrence: None)
  Receive Date: 20070607
  Receipt Date: 20070607
  Transmission Date: 20071010
  Serious: Yes (Death, Other)
  Sender: FDA-Public Use
  Company Number: None

PATIENT
  Age: 67 Year
  Sex: Male
  Weight: 63.5036 kg

DRUGS (1)
  1. RISPERIDONE [Suspect]
     Indication: ANXIETY
     Dosage: .5MG 1 P/DAY PO
     Route: 048
     Dates: start: 20061001, end: 20070212

REACTIONS (2)
  - ADVERSE DRUG REACTION [None]
  - DYSPHAGIA [None]
